FAERS Safety Report 9412990 (Version 2)
Quarter: 2013Q3

REPORT INFORMATION
  Report Type: Spontaneous
  Country: IT (occurrence: IT)
  Receive Date: 20130722
  Receipt Date: 20130910
  Transmission Date: 20140515
  Serious: Yes (Hospitalization)
  Sender: FDA-Public Use
  Company Number: IT-TEVA-420489USA

PATIENT
  Age: 80 Year
  Sex: Male

DRUGS (9)
  1. LEVACT [Suspect]
     Indication: CHRONIC LYMPHOCYTIC LEUKAEMIA
     Dosage: UNKNOWN/D
     Route: 042
     Dates: start: 20130610, end: 20130611
  2. ACICLOVIR [Concomitant]
     Dosage: 800 MILLIGRAM DAILY;
     Route: 048
  3. RITUXIMAB [Concomitant]
     Indication: CHRONIC LYMPHOCYTIC LEUKAEMIA
     Route: 042
     Dates: start: 20130610, end: 20130610
  4. TRIMETON [Concomitant]
     Route: 042
     Dates: start: 20130610, end: 20130610
  5. ISOPTIN [Concomitant]
     Indication: HYPERTENSION
     Dosage: PROLONGED RELEASE TABLETS 1 DF/DAY
  6. KARVEA [Concomitant]
     Indication: HYPERTENSION
     Dosage: 1 DF/DAY
     Route: 048
  7. LASIX [Concomitant]
     Indication: HYPERTENSION
     Dosage: 1 DF/DAY
     Route: 048
  8. SELEPARINA [Concomitant]
     Indication: ATRIAL FIBRILLATION
     Dosage: 7600 IU/0.8 ML INJECTABLE SOLUTION
  9. ZOFRAN [Concomitant]
     Dosage: 8MG/4ML INJECTABLE SOLUTION, 8MG/DAY
     Dates: start: 20130610, end: 20130611

REACTIONS (2)
  - Hypercalcaemia [Recovered/Resolved]
  - Asthenia [Recovered/Resolved]
